FAERS Safety Report 7958860-3 (Version None)
Quarter: 2011Q4

REPORT INFORMATION
  Report Type: 
  Country: None (occurrence: None)
  Receive Date: 20111206
  Receipt Date: 20111127
  Transmission Date: 20120403
  Serious: Yes (Other)
  Sender: FDA-Public Use
  Company Number: JP-BRISTOL-MYERS SQUIBB COMPANY-16224719

PATIENT
  Age: 58 Year
  Sex: Female

DRUGS (11)
  1. AZITHROMYCIN [Concomitant]
     Dates: start: 20110705
  2. MYCOPHENOLATE MOFETIL [Concomitant]
     Dates: start: 20110228
  3. CYCLOSPORINE [Concomitant]
     Dates: start: 20110228
  4. POVIDONE IODINE [Concomitant]
     Dates: start: 20110607, end: 20110607
  5. TRANEXAMIC ACID [Concomitant]
     Dates: start: 20110705
  6. VILDAGLIPTIN [Concomitant]
     Dates: start: 20110531
  7. CARBOCISTEINE [Concomitant]
     Dates: start: 20110705
  8. PREDNISOLONE [Concomitant]
     Dates: start: 20110309
  9. CEFPODOXIME PROXETIL [Concomitant]
     Dates: start: 20110531
  10. LANSOPRAZOLE [Concomitant]
     Dates: start: 20110320
  11. AVAPRO [Suspect]
     Dates: start: 20110607, end: 20110621

REACTIONS (1)
  - DEAFNESS [None]
